FAERS Safety Report 5212139-1 (Version None)
Quarter: 2007Q1

REPORT INFORMATION
  Report Type: 
  Country: None (occurrence: None)
  Receive Date: 20070118
  Receipt Date: 20070108
  Transmission Date: 20070707
  Serious: Yes (Death, Hospitalization)
  Sender: FDA-Public Use
  Company Number: US-SANOFI-SYNTHELABO-A03200700240

PATIENT
  Sex: Male
  Weight: 81.63 kg

DRUGS (3)
  1. LANTUS [Concomitant]
     Dosage: UNK
     Route: 058
  2. PLAVIX [Suspect]
     Indication: MYOCARDIAL INFARCTION
     Dosage: UNK
     Route: 048
     Dates: start: 20000101
  3. PLAVIX [Suspect]
     Indication: STENT PLACEMENT
     Dosage: UNK
     Route: 048
     Dates: start: 20000101

REACTIONS (4)
  - CEREBROVASCULAR ACCIDENT [None]
  - DEATH [None]
  - HAEMORRHAGE [None]
  - VASCULAR BYPASS GRAFT [None]
